FAERS Safety Report 4559306-8 (Version None)
Quarter: 2005Q1

REPORT INFORMATION
  Report Type: 
  Country: None (occurrence: None)
  Receive Date: 20050124
  Receipt Date: 20050118
  Transmission Date: 20050727
  Serious: Yes (Hospitalization)
  Sender: FDA-Public Use
  Company Number: US-JNJFOC-20040606849

PATIENT
  Sex: Female

DRUGS (1)
  1. DURAGESIC [Suspect]
     Route: 062

REACTIONS (7)
  - CHILLS [None]
  - DIARRHOEA [None]
  - FEELING ABNORMAL [None]
  - IMPAIRED WORK ABILITY [None]
  - INSOMNIA [None]
  - MEDICATION ERROR [None]
  - OVERDOSE [None]
